FAERS Safety Report 15279789 (Version 1)
Quarter: 2018Q3

REPORT INFORMATION
  Report Type: Spontaneous
  Country: US (occurrence: US)
  Receive Date: 20180815
  Receipt Date: 20180815
  Transmission Date: 20181010
  Serious: No
  Sender: FDA-Public Use
  Company Number: US-ELI_LILLY_AND_COMPANY-US201808000885

PATIENT
  Age: 69 Year
  Sex: Female

DRUGS (2)
  1. BASAGLAR [Suspect]
     Active Substance: INSULIN GLARGINE
     Dosage: 15 U, DAILY
     Route: 058
     Dates: start: 20180724
  2. BASAGLAR [Suspect]
     Active Substance: INSULIN GLARGINE
     Indication: PRODUCT USED FOR UNKNOWN INDICATION
     Dosage: 15 U, DAILY
     Route: 058
     Dates: start: 201804

REACTIONS (1)
  - Accidental underdose [Not Recovered/Not Resolved]

NARRATIVE: CASE EVENT DATE: 20180731
